FAERS Safety Report 4476100-7 (Version None)
Quarter: 2004Q3

REPORT INFORMATION
  Report Type: 
  Country: None (occurrence: None)
  Receive Date: 20040923
  Receipt Date: 20040622
  Transmission Date: 20050211
  Serious: No
  Sender: FDA-Public Use
  Company Number: USA040670830

PATIENT
  Age: 75 Year
  Sex: Female

DRUGS (9)
  1. FORTEO [Suspect]
     Indication: OSTEOPOROSIS
     Dosage: 20 UG DAY
     Dates: start: 20040606
  2. SYNTHROID [Concomitant]
  3. ATENOLOL [Concomitant]
  4. ZOCOR [Concomitant]
  5. CLONAZEPAM [Concomitant]
  6. IMITREX [Concomitant]
  7. FISH OIL [Concomitant]
  8. VITAMIN E [Concomitant]
  9. CALCIUM [Concomitant]

REACTIONS (3)
  - CONSTIPATION [None]
  - FEELING ABNORMAL [None]
  - FEELING HOT [None]
